FAERS Safety Report 17450494 (Version 1)
Quarter: 2020Q1

REPORT INFORMATION
  Report Type: Spontaneous
  Country: US (occurrence: US)
  Receive Date: 20200221
  Receipt Date: 20200221
  Transmission Date: 20200409
  Serious: Yes (Disabling)
  Sender: FDA-Public Use
  Company Number: None

PATIENT
  Age: 43 Year
  Sex: Male
  Weight: 137.7 kg

DRUGS (15)
  1. CARBAMAZEPINE. [Concomitant]
     Active Substance: CARBAMAZEPINE
  2. VASCEPA [Concomitant]
     Active Substance: ICOSAPENT ETHYL
  3. ROUVASTATIN [Concomitant]
     Active Substance: ROSUVASTATIN
  4. METAFORMIN ER [Concomitant]
  5. LOSARTAN. [Concomitant]
     Active Substance: LOSARTAN
  6. MAGNESIUM [Concomitant]
     Active Substance: MAGNESIUM
  7. PANTOPRAZOLE [Concomitant]
     Active Substance: PANTOPRAZOLE
  8. LAMOTRIGINE. [Suspect]
     Active Substance: LAMOTRIGINE
     Indication: BIPOLAR I DISORDER
     Dosage: ?          QUANTITY:1 TABLET(S);?
     Route: 048
     Dates: start: 20190102
  9. LITHIUM CARBONATE. [Concomitant]
     Active Substance: LITHIUM CARBONATE
  10. JARDIANCE [Concomitant]
     Active Substance: EMPAGLIFLOZIN
  11. CALCIUM [Concomitant]
     Active Substance: CALCIUM
  12. ASPIRIN. [Concomitant]
     Active Substance: ASPIRIN
  13. LAMOTRIGINE. [Concomitant]
     Active Substance: LAMOTRIGINE
  14. GABAPENTIN. [Concomitant]
     Active Substance: GABAPENTIN
  15. VITAMIN D3 [Concomitant]
     Active Substance: CHOLECALCIFEROL

REACTIONS (9)
  - Gastrointestinal disorder [None]
  - Memory impairment [None]
  - Confusional state [None]
  - Documented hypersensitivity to administered product [None]
  - Hepatic enzyme increased [None]
  - Blood triglycerides increased [None]
  - Drug reaction with eosinophilia and systemic symptoms [None]
  - Rash [None]
  - Yellow skin [None]

NARRATIVE: CASE EVENT DATE: 20190305
